FAERS Safety Report 6431446-8 (Version None)
Quarter: 2009Q4

REPORT INFORMATION
  Report Type: 
  Country: None (occurrence: None)
  Receive Date: 20091105
  Receipt Date: 20091105
  Transmission Date: 20100525
  Serious: Yes (Other)
  Sender: FDA-Public Use
  Company Number: None

PATIENT
  Sex: Female
  Weight: 70.7611 kg

DRUGS (1)
  1. FOSAMAX [Suspect]
     Indication: OSTEOPOROSIS
     Dosage: 7.5MG 1X WEEK
     Dates: start: 20000101, end: 20080101

REACTIONS (5)
  - CHOKING [None]
  - DRUG INEFFECTIVE [None]
  - DYSPHAGIA [None]
  - GAIT DISTURBANCE [None]
  - PAIN IN EXTREMITY [None]
